FAERS Safety Report 26087723 (Version 1)
Quarter: 2025Q4

REPORT INFORMATION
  Report Type: Spontaneous
  Country: US (occurrence: US)
  Receive Date: 20251125
  Receipt Date: 20251125
  Transmission Date: 20260118
  Serious: No
  Sender: MYLAN
  Company Number: US-MYLANLABS-2025M1099258

PATIENT
  Age: 36 Year
  Sex: Female

DRUGS (4)
  1. ZIPRASIDONE [Suspect]
     Active Substance: ZIPRASIDONE
     Indication: Product used for unknown indication
     Dosage: UNK
  2. ZIPRASIDONE [Suspect]
     Active Substance: ZIPRASIDONE
     Dosage: UNK
     Route: 065
  3. ZIPRASIDONE [Suspect]
     Active Substance: ZIPRASIDONE
     Dosage: UNK
     Route: 065
  4. ZIPRASIDONE [Suspect]
     Active Substance: ZIPRASIDONE
     Dosage: UNK

REACTIONS (1)
  - Drug ineffective [Unknown]
